FAERS Safety Report 6453282-9 (Version None)
Quarter: 2009Q4

REPORT INFORMATION
  Report Type: 
  Country: None (occurrence: None)
  Receive Date: 20091124
  Receipt Date: 20091112
  Transmission Date: 20100525
  Serious: Yes (Hospitalization)
  Sender: FDA-Public Use
  Company Number: FR-AMGEN-US375163

PATIENT
  Sex: Male

DRUGS (1)
  1. ENBREL [Suspect]
     Indication: PSORIASIS
     Dosage: 50 MG 2 TIMES WEEKLY WITH AN ACCIDENTAL OVERDOSE IN OCT-2009: 4 DOSES OF 50 MG (200 MG) OVER 1 WEEK
     Route: 058
     Dates: start: 20090301, end: 20091105

REACTIONS (7)
  - ACCIDENTAL OVERDOSE [None]
  - ALOPECIA SCARRING [None]
  - CUTANEOUS VASCULITIS [None]
  - GENERAL PHYSICAL HEALTH DETERIORATION [None]
  - INAPPROPRIATE SCHEDULE OF DRUG ADMINISTRATION [None]
  - PURPURA [None]
  - RASH PUSTULAR [None]
